FAERS Safety Report 8598258 (Version 2)
Quarter: 2013Q3

REPORT INFORMATION
  Report Type: Spontaneous
  Country: US (occurrence: US)
  Receive Date: 20120605
  Receipt Date: 20130904
  Transmission Date: 20140515
  Serious: Yes (Other)
  Sender: FDA-Public Use
  Company Number: US-AMGEN-USASP2012030826

PATIENT
  Age: 53 Year
  Sex: Female

DRUGS (2)
  1. ENBREL [Suspect]
     Indication: RHEUMATOID ARTHRITIS
     Dosage: 50 MG, QWK
     Route: 065
     Dates: start: 20090902
  2. VITAMIN B12                        /00056201/ [Concomitant]
     Indication: FATIGUE
     Dosage: UNK

REACTIONS (3)
  - Cellulitis [Recovered/Resolved]
  - Purulence [Recovered/Resolved]
  - Administration site reaction [Not Recovered/Not Resolved]
